FAERS Safety Report 10235426 (Version 1)
Quarter: 2014Q1

REPORT INFORMATION
  Report Type: Spontaneous
  Country: US (occurrence: None)
  Receive Date: 20140306
  Receipt Date: 20140306
  Transmission Date: 20141002
  Serious: Yes (Other)
  Sender: FDA-Public Use
  Company Number: 163-21880-13011262

PATIENT
  Age: 72 Year
  Sex: Male
  Weight: 99.02 kg

DRUGS (8)
  1. REVLIMID (LENALIDOMIDE) (10 MILLIGRAM, CAPSULES) [Suspect]
     Indication: PLASMA CELL MYELOMA
     Dosage: 21 IN 28 D
     Route: 048
     Dates: start: 20120310
  2. GAS-X (DIMETICONE, ACTIVATED) [Concomitant]
  3. TYLENOL EXTRA STRENGTH (PARACETAMOL) [Concomitant]
  4. FAMCICLOVIR (FACICLOVIR) [Concomitant]
  5. FLUTICASONE (FLUTICASONE) [Concomitant]
  6. COUMADIN (WARFARIN SODIUM) [Concomitant]
  7. METOPROLOL (METOPROLOL) [Concomitant]
  8. RANITIDINE (RANITIDINE) [Concomitant]

REACTIONS (2)
  - Joint swelling [None]
  - Arthralgia [None]
